FAERS Safety Report 5717402-3 (Version None)
Quarter: 2008Q2

REPORT INFORMATION
  Report Type: 
  Country: None (occurrence: None)
  Receive Date: 20080425
  Receipt Date: 20080325
  Transmission Date: 20081010
  Serious: No
  Sender: FDA-Public Use
  Company Number: US-BAYER-200818493NA

PATIENT
  Age: 42 Year
  Sex: Female
  Weight: 118 kg

DRUGS (1)
  1. MIRENA [Suspect]
     Indication: CONTRACEPTION
     Route: 015
     Dates: start: 20080214, end: 20080325

REACTIONS (8)
  - ABDOMINAL PAIN LOWER [None]
  - EMOTIONAL DISTRESS [None]
  - FEAR [None]
  - INTRA-UTERINE CONTRACEPTIVE DEVICE EXPELLED [None]
  - MENTAL STATUS CHANGES [None]
  - PAIN [None]
  - POST PROCEDURAL COMPLICATION [None]
  - VULVOVAGINAL DISCOMFORT [None]
